FAERS Safety Report 8552676-5 (Version None)
Quarter: 2012Q3

REPORT INFORMATION
  Report Type: 
  Country: None (occurrence: None)
  Receive Date: 20120731
  Receipt Date: 20120724
  Transmission Date: 20120928
  Serious: No
  Sender: FDA-Public Use
  Company Number: US-PFIZER INC-2012179219

PATIENT
  Sex: Female
  Weight: 52.608 kg

DRUGS (5)
  1. REVATIO [Suspect]
     Indication: PULMONARY HYPERTENSION
     Dosage: 20 MG, 3X/DAY
     Route: 048
     Dates: start: 20120616, end: 20120601
  2. REVATIO [Suspect]
     Dosage: 20 MG, 3X/DAY
     Route: 048
     Dates: start: 20120722
  3. PREVACID [Concomitant]
     Indication: DYSPEPSIA
     Dosage: UNK
  4. DEXILANT [Concomitant]
     Indication: DYSPEPSIA
     Dosage: UNK
  5. REVATIO [Suspect]
     Dosage: 20 MG, 3X/DAY
     Route: 048
     Dates: start: 20120622, end: 20120626

REACTIONS (1)
  - MYALGIA [None]
